FAERS Safety Report 10376542 (Version 1)
Quarter: 2014Q3

REPORT INFORMATION
  Report Type: Spontaneous
  Country: US (occurrence: None)
  Receive Date: 20140807
  Receipt Date: 20140807
  Transmission Date: 20150326
  Serious: Yes (Hospitalization, Other)
  Sender: FDA-Public Use
  Company Number: 2012-001843

PATIENT
  Age: 73 Year
  Sex: Female
  Weight: 70 kg

DRUGS (18)
  1. ACTONEL [Suspect]
     Active Substance: RISEDRONATE SODIUM
     Indication: OSTEOPOROSIS
     Dosage: 35 MG ONCE WEEKLY, ORAL
     Route: 048
     Dates: start: 200209, end: 200509
  2. VIOXX [Concomitant]
     Active Substance: ROFECOXIB
  3. TEMAZEPAM (TEMAZEPAM) [Concomitant]
     Active Substance: TEMAZEPAM
  4. BONIVA [Suspect]
     Active Substance: IBANDRONATE SODIUM
     Indication: OSTEOPOROSIS PROPHYLAXIS
     Dosage: 150 MG ONCE MONTHY, ORAL
     Route: 048
     Dates: start: 200510, end: 2010
  5. MULTIVITAMIN /00097801/ (ASCORBIC ACID, CALCIUM PANTOTHENATE, ERGOCALCIFEROL, NICOTINAMIDE, PYRIDOXINE HYDROCHLORIDE, RETINOL, RIBOFLAVIN, THIAMINE HYDROCHLORIDE) [Concomitant]
  6. PREMARIN (ESTROGENS CONJUGATED) [Concomitant]
  7. ASPIRIN. [Concomitant]
     Active Substance: ASPIRIN
  8. PRILOSEC [Concomitant]
     Active Substance: OMEPRAZOLE MAGNESIUM
  9. ALLEGRA-D /01367401/  (FEXOFENADINE HYDROCHLORIDE, PSEUDOEPHEDRINE HYDROCHLORIDE) ? [Concomitant]
  10. METHYLPREDNISONLONE (METHYLPREDNISOLONE) [Concomitant]
  11. BONIVA [Suspect]
     Active Substance: IBANDRONATE SODIUM
     Indication: OSTEOPOROSIS
     Dosage: 150 MG ONCE MONTHY, ORAL
     Route: 048
     Dates: start: 200510, end: 2010
  12. ACTONEL [Suspect]
     Active Substance: RISEDRONATE SODIUM
     Indication: OSTEOPOROSIS PROPHYLAXIS
     Dosage: 35 MG ONCE WEEKLY, ORAL
     Route: 048
     Dates: start: 200209, end: 200509
  13. FOSAMAX [Suspect]
     Active Substance: ALENDRONATE SODIUM
     Indication: OSTEOPOROSIS
     Dosage: 70 MG, ONCE WEEKLY, ORAL
     Route: 048
     Dates: start: 200202, end: 200209
  14. CELEBREX [Concomitant]
     Active Substance: CELECOXIB
  15. MAXZIDE (HYDROCHLOROTHIAZIDE, TRIAMTERENE) [Concomitant]
  16. ZOLOFT [Concomitant]
     Active Substance: SERTRALINE HYDROCHLORIDE
  17. CEFTIN (CEFUROXIME AXETIL) [Concomitant]
  18. CALTRATE D /00944201/ (CALCIUM CARBONATE, COLECALCIFEROL) [Concomitant]

REACTIONS (6)
  - Pathological fracture [None]
  - Bone disorder [None]
  - Fracture displacement [None]
  - Femur fracture [None]
  - Low turnover osteopathy [None]
  - Stress fracture [None]

NARRATIVE: CASE EVENT DATE: 20100508
